FAERS Safety Report 9500829 (Version 1)
Quarter: 2013Q3

REPORT INFORMATION
  Report Type: Spontaneous
  Country: DE (occurrence: DE)
  Receive Date: 20130905
  Receipt Date: 20130905
  Transmission Date: 20140515
  Serious: Yes (Other)
  Sender: FDA-Public Use
  Company Number: DE-PFIZER INC-2013251843

PATIENT
  Age: 52 Year
  Sex: Female

DRUGS (3)
  1. RIFABUTIN [Suspect]
     Indication: DISSEMINATED TUBERCULOSIS
     Dosage: UNK
  2. AZITHROMYCIN [Suspect]
     Indication: DISSEMINATED TUBERCULOSIS
     Dosage: UNK
  3. ETHAMBUTOL [Suspect]
     Indication: DISSEMINATED TUBERCULOSIS
     Dosage: UNK

REACTIONS (8)
  - Respiratory failure [Unknown]
  - Renal failure [Unknown]
  - Drug intolerance [Unknown]
  - Hepatotoxicity [Unknown]
  - Abdominal pain [Unknown]
  - Gastrointestinal motility disorder [Unknown]
  - Organ failure [Unknown]
  - Hypercapnia [Unknown]
